FAERS Safety Report 5331639-7 (Version None)
Quarter: 2007Q2

REPORT INFORMATION
  Report Type: 
  Country: None (occurrence: None)
  Receive Date: 20070516
  Receipt Date: 20070511
  Transmission Date: 20071010
  Serious: Yes (Death, Other)
  Sender: FDA-Public Use
  Company Number: 163-21880-07040044

PATIENT
  Age: 61 Year
  Sex: Male

DRUGS (8)
  1. REVLIMID [Suspect]
     Indication: MULTIPLE MYELOMA
     Dosage: 25 MG, 3 WEEKS ON 1 OFF, ORAL
     Route: 048
     Dates: start: 20061201, end: 20070101
  2. METOPROLOL TARTRATE [Concomitant]
  3. WELLBUTRIN SR [Concomitant]
  4. LASIX [Concomitant]
  5. NEXIUM [Concomitant]
  6. LIPITOR [Concomitant]
  7. VALTREX [Concomitant]
  8. LOTENSIN [Concomitant]

REACTIONS (6)
  - BLOOD CULTURE POSITIVE [None]
  - DYSPNOEA [None]
  - HYPOTENSION [None]
  - NEUTROPENIA [None]
  - PSEUDOMONAS INFECTION [None]
  - SEPSIS [None]
